FAERS Safety Report 8241097-0 (Version None)
Quarter: 2012Q1

REPORT INFORMATION
  Report Type: 
  Country: None (occurrence: None)
  Receive Date: 20120328
  Receipt Date: 20120321
  Transmission Date: 20120608
  Serious: Yes (Life-Threatening)
  Sender: FDA-Public Use
  Company Number: IN-GLAXOSMITHKLINE-A0970864A

PATIENT
  Sex: Male
  Weight: 47.6 kg

DRUGS (3)
  1. LAPATINIB [Suspect]
     Indication: HEAD AND NECK CANCER
     Dosage: 1500MG PER DAY
     Route: 048
     Dates: start: 20100913, end: 20110906
  2. RADIOTHERAPY [Concomitant]
     Indication: HEAD AND NECK CANCER
     Dosage: 4GY VARIABLE DOSE
     Route: 061
     Dates: start: 20100917
  3. CISPLATIN [Suspect]
     Indication: HEAD AND NECK CANCER
     Dosage: 100MGM2 CYCLIC
     Route: 042
     Dates: start: 20100917

REACTIONS (1)
  - PANCREATITIS [None]
